FAERS Safety Report 6084608-6 (Version None)
Quarter: 2009Q1

REPORT INFORMATION
  Report Type: 
  Country: None (occurrence: None)
  Receive Date: 20090219
  Receipt Date: 20090211
  Transmission Date: 20090719
  Serious: Yes (Hospitalization)
  Sender: FDA-Public Use
  Company Number: AU-B.I. PHARMACEUTICALS,INC./RIDGEFIELD-2009-AU-00003AU

PATIENT
  Sex: Female
  Weight: 58 kg

DRUGS (11)
  1. TIOTROPIUM RESPIMAT [Suspect]
     Indication: CYSTIC FIBROSIS
     Dosage: 2.5MCG
     Route: 055
     Dates: start: 20090113, end: 20090210
  2. MICROGYNON 30 [Concomitant]
     Indication: CONTRACEPTION
     Dosage: 180MCG
     Route: 048
  3. CREON [Concomitant]
     Indication: PANCREATIC INSUFFICIENCY
     Route: 048
  4. VIT ABDEK [Concomitant]
     Indication: HYPOVITAMINOSIS
     Route: 048
  5. SALT TABLETS [Concomitant]
     Indication: HYPONATRAEMIA
     Route: 048
  6. AZITHROMYCIN [Concomitant]
     Indication: PROPHYLAXIS
     Dosage: 500MG
     Route: 048
  7. INNER HEALTH PLUS [Concomitant]
     Indication: CANDIDIASIS
     Route: 048
  8. NILSTAT [Concomitant]
     Indication: CANDIDIASIS
     Dosage: 1500000U
     Route: 048
  9. VENTOLIN [Concomitant]
     Indication: PROPHYLAXIS
     Dosage: 400MCG
     Route: 055
  10. TELFAST [Concomitant]
     Indication: SEASONAL ALLERGY
     Dosage: 120MG
     Route: 048
  11. BECONASE [Concomitant]
     Indication: SEASONAL ALLERGY
     Route: 055

REACTIONS (1)
  - CYSTIC FIBROSIS LUNG [None]
